FAERS Safety Report 10084429 (Version 1)
Quarter: 2014Q2

REPORT INFORMATION
  Report Type: Spontaneous
  Country: CH (occurrence: CH)
  Receive Date: 20140417
  Receipt Date: 20140417
  Transmission Date: 20141212
  Serious: Yes (Hospitalization)
  Sender: FDA-Public Use
  Company Number: PHHY2014CH044791

PATIENT
  Age: 32 Year
  Sex: Female

DRUGS (5)
  1. VOLTAREN [Suspect]
     Dosage: 50 MG, QD
     Route: 048
     Dates: start: 20140314, end: 20140318
  2. ACETYLSALICYLIC ACID [Suspect]
     Indication: MIGRAINE
     Dosage: 1000 MG, QD
     Route: 048
     Dates: start: 20140314, end: 20140318
  3. PAROXETINE [Suspect]
     Dosage: 20 MG, QD
     Route: 048
  4. TOPAMAX [Concomitant]
     Dosage: 50 MG, BID
     Route: 048
  5. SIBELIUM [Concomitant]
     Dosage: 10 MG, QD
     Route: 048

REACTIONS (4)
  - Lower gastrointestinal haemorrhage [Recovering/Resolving]
  - Abdominal pain upper [Unknown]
  - Haematochezia [Unknown]
  - Melaena [Recovering/Resolving]
